FAERS Safety Report 12788558 (Version 1)
Quarter: 2016Q3

REPORT INFORMATION
  Report Type: Spontaneous
  Country: VE (occurrence: VE)
  Receive Date: 20160928
  Receipt Date: 20160928
  Transmission Date: 20161109
  Serious: Yes (Life-Threatening, Other)
  Sender: FDA-Public Use
  Company Number: PHHY2016VE131880

PATIENT
  Sex: Female

DRUGS (5)
  1. ALOVENT [Concomitant]
     Indication: CHRONIC OBSTRUCTIVE PULMONARY DISEASE
     Dosage: 4 DF, QD
     Route: 055
  2. DEFLAZACORT [Concomitant]
     Active Substance: DEFLAZACORT
     Indication: PNEUMONITIS
     Dosage: 7.5 MG, QD (1/4 TABLET DAILY) FOR 15 DAYS
     Route: 065
  3. OMEPRAZOLE. [Concomitant]
     Active Substance: OMEPRAZOLE
     Indication: GASTRIC DISORDER
     Dosage: 2 DF, QD
     Route: 065
  4. SEEBRI BREEZHALER [Suspect]
     Active Substance: GLYCOPYRROLATE
     Indication: CHRONIC OBSTRUCTIVE PULMONARY DISEASE
     Dosage: 50 MCG, QD
     Route: 055
  5. ONBREZ BREEZHALER [Suspect]
     Active Substance: INDACATEROL
     Indication: CHRONIC OBSTRUCTIVE PULMONARY DISEASE
     Dosage: 150 MCG, QD
     Route: 055

REACTIONS (7)
  - Respiratory disorder [Recovering/Resolving]
  - Dyspnoea [Recovering/Resolving]
  - Myocardial ischaemia [Recovering/Resolving]
  - Apparent death [Unknown]
  - Choking [Recovering/Resolving]
  - Asphyxia [Recovering/Resolving]
  - Feeling abnormal [Recovering/Resolving]
